FAERS Safety Report 17610130 (Version 1)
Quarter: 2020Q2

REPORT INFORMATION
  Report Type: Spontaneous
  Country: DE (occurrence: DE)
  Receive Date: 20200401
  Receipt Date: 20200401
  Transmission Date: 20200713
  Serious: Yes (Death, Other)
  Sender: FDA-Public Use
  Company Number: NVSC2020DE088590

PATIENT
  Age: 4 Month
  Sex: Female

DRUGS (11)
  1. ALEMTUZUMAB [Suspect]
     Active Substance: ALEMTUZUMAB
     Indication: CONGENITAL ECTODERMAL DYSPLASIA
     Dosage: 0.2 MG/KG, QD; (DAYS -9 AND -8)
     Route: 065
  2. TREOSULFAN [Suspect]
     Active Substance: TREOSULFAN
     Indication: BONE MARROW CONDITIONING REGIMEN
  3. FLUDARABINE PHOSPHATE. [Suspect]
     Active Substance: FLUDARABINE PHOSPHATE
     Indication: CONGENITAL ECTODERMAL DYSPLASIA
     Dosage: 30 MG/M2, QD (ON DAYS -7 TO -3)
     Route: 065
  4. ALEMTUZUMAB [Suspect]
     Active Substance: ALEMTUZUMAB
     Indication: BONE MARROW CONDITIONING REGIMEN
  5. FLUDARABINE PHOSPHATE. [Suspect]
     Active Substance: FLUDARABINE PHOSPHATE
     Indication: BONE MARROW CONDITIONING REGIMEN
  6. CYCLOPHOSPHAMIDE. [Suspect]
     Active Substance: CYCLOPHOSPHAMIDE
     Indication: CONGENITAL ECTODERMAL DYSPLASIA
     Dosage: 14.5 MG/KG, QD (DAYS -3 AND -2)
     Route: 065
  7. TREOSULFAN [Suspect]
     Active Substance: TREOSULFAN
     Indication: CONGENITAL ECTODERMAL DYSPLASIA
     Dosage: 14 G/M2, QD (ON DAYS -7 TO -5 )
     Route: 065
  8. CYCLOPHOSPHAMIDE. [Suspect]
     Active Substance: CYCLOPHOSPHAMIDE
     Indication: BONE MARROW CONDITIONING REGIMEN
     Dosage: 50 MG/KG, QD; (DAYS +3 AND +4)
     Route: 065
  9. CYCLOPHOSPHAMIDE. [Suspect]
     Active Substance: CYCLOPHOSPHAMIDE
     Indication: PROPHYLAXIS AGAINST GRAFT VERSUS HOST DISEASE
  10. THIOTEPA. [Concomitant]
     Active Substance: THIOTEPA
     Indication: CONGENITAL ECTODERMAL DYSPLASIA
     Dosage: 5 MG/KG, BID; (ON DAY -4 )
     Route: 065
  11. THIOTEPA. [Concomitant]
     Active Substance: THIOTEPA
     Indication: BONE MARROW CONDITIONING REGIMEN

REACTIONS (3)
  - Neurotoxicity [Fatal]
  - Brain oedema [Fatal]
  - Off label use [Unknown]
